FAERS Safety Report 17298927 (Version 2)
Quarter: 2020Q1

REPORT INFORMATION
  Report Type: Report from Study
  Country: DE (occurrence: DE)
  Receive Date: 20200121
  Receipt Date: 20200131
  Transmission Date: 20200409
  Serious: Yes (Hospitalization)
  Sender: FDA-Public Use
  Company Number: NVSC2020DE003964

PATIENT
  Age: 74 Year
  Sex: Female
  Weight: 76.6 kg

DRUGS (7)
  1. EVEROLIMUS. [Suspect]
     Active Substance: EVEROLIMUS
     Indication: PRODUCT USED FOR UNKNOWN INDICATION
     Dosage: 5 MG, QD
     Route: 065
     Dates: start: 20191212, end: 20191230
  2. EXEMESTAAN [Concomitant]
     Active Substance: EXEMESTANE
     Indication: BREAST CANCER
     Dosage: 25 MG, QD
     Route: 065
     Dates: start: 20191212
  3. ENOXAPARIN [Concomitant]
     Active Substance: ENOXAPARIN
     Indication: PULMONARY EMBOLISM
     Dosage: 60 MG, BID
     Route: 065
     Dates: start: 20191018, end: 20191030
  4. PLACEBO [Suspect]
     Active Substance: UNSPECIFIED INGREDIENT
     Indication: BREAST CANCER
     Dosage: UNK
     Route: 048
     Dates: start: 20160428, end: 20191208
  5. DENOSUMAB [Concomitant]
     Active Substance: DENOSUMAB
     Indication: METASTASES TO BONE
     Dosage: 120 UG
     Route: 065
     Dates: start: 20160307
  6. DABIGATRAN [Concomitant]
     Active Substance: DABIGATRAN
     Indication: PULMONARY EMBOLISM
     Dosage: 150 MG, BID
     Route: 065
     Dates: start: 20191031
  7. FULVESTRANT COMP-FUL+ [Suspect]
     Active Substance: FULVESTRANT
     Indication: BREAST CANCER
     Dosage: 600 MG
     Route: 048
     Dates: start: 20160428, end: 20191204

REACTIONS (1)
  - Gastric ulcer [Recovering/Resolving]

NARRATIVE: CASE EVENT DATE: 20191228
